FAERS Safety Report 5696369-0 (Version None)
Quarter: 2008Q2

REPORT INFORMATION
  Report Type: 
  Country: None (occurrence: None)
  Receive Date: 20080408
  Receipt Date: 20080328
  Transmission Date: 20081010
  Serious: Yes (Life-Threatening, Other)
  Sender: FDA-Public Use
  Company Number: GB-RANBAXY-2008RR-14130

PATIENT

DRUGS (1)
  1. METFORMIN 500MG TABLETS [Suspect]
     Indication: OBESITY
     Dosage: UNK
     Route: 048
     Dates: start: 20071121, end: 20080301

REACTIONS (1)
  - COLONIC POLYP [None]
